FAERS Safety Report 6231631-4 (Version None)
Quarter: 2009Q2

REPORT INFORMATION
  Report Type: 
  Country: None (occurrence: None)
  Receive Date: 20090616
  Receipt Date: 20090611
  Transmission Date: 20091009
  Serious: Yes (Disabling, Other)
  Sender: FDA-Public Use
  Company Number: CH-BAYER-200919857GPV

PATIENT
  Age: 28 Year
  Sex: Male
  Weight: 78 kg

DRUGS (29)
  1. CIPROFLOXACIN HCL [Suspect]
     Indication: CYSTIC FIBROSIS
     Dosage: 6-8 COURSES DURING A YEAR
     Route: 048
  2. CREON [AMYLASE,LIPASE,PANCREATIN,PROTEASE] [Concomitant]
     Indication: CYSTIC FIBROSIS
     Dosage: BETWEEN MEALS 2 TAB. (CA. 15 CAPS. PER DAY)
     Route: 065
  3. SUPRADYN [Concomitant]
     Indication: DRUG USE FOR UNKNOWN INDICATION
     Route: 065
  4. EPHYNAL [Concomitant]
     Indication: DRUG USE FOR UNKNOWN INDICATION
     Route: 065
  5. ZITHROMAX [Concomitant]
     Indication: DRUG USE FOR UNKNOWN INDICATION
     Route: 048
  6. VITAMIN D3 [Concomitant]
     Indication: BONE DISORDER
     Route: 048
  7. ECOMUCYL [Concomitant]
     Indication: CYSTIC FIBROSIS
     Route: 048
  8. VITAMIN C STREULI [Concomitant]
     Indication: DRUG USE FOR UNKNOWN INDICATION
     Route: 048
  9. CITALOPRAM ECOSOL [Concomitant]
     Indication: DRUG USE FOR UNKNOWN INDICATION
     Route: 065
  10. SERETIDE DISKUS [Concomitant]
     Indication: CYSTIC FIBROSIS
     Route: 055
  11. FLUTINASE [Concomitant]
     Indication: CYSTIC FIBROSIS
     Dosage: 3 X MORNING, 3 X EVENING
     Route: 045
  12. COLISTIN SULFATE [Concomitant]
     Indication: DRUG USE FOR UNKNOWN INDICATION
     Dosage: 1 MIO E
     Route: 055
  13. NATRII CHLORIDUM [Concomitant]
     Indication: CYSTIC FIBROSIS
     Route: 055
  14. PULMOZYME [Concomitant]
     Indication: CYSTIC FIBROSIS
     Route: 055
  15. ATROVENT [Concomitant]
     Indication: CYSTIC FIBROSIS
     Route: 055
  16. VENTOLIN [Concomitant]
     Indication: CYSTIC FIBROSIS
     Dosage: MIXED WITH ATROVENT (250MCG/2ML)
     Route: 055
  17. VENTOLIN RESPIRATOR [Concomitant]
     Indication: CYSTIC FIBROSIS
     Route: 055
  18. AZICLAV [Concomitant]
     Indication: DRUG USE FOR UNKNOWN INDICATION
     Route: 065
  19. BIOFLORIN [Concomitant]
     Indication: DRUG USE FOR UNKNOWN INDICATION
     Route: 065
  20. TOBI INHALATION AMPULLEN [Concomitant]
     Indication: DRUG USE FOR UNKNOWN INDICATION
     Route: 065
  21. PREDNISON [Concomitant]
     Indication: DRUG USE FOR UNKNOWN INDICATION
     Dosage: MAX. 80 MG PER DAY FOR MAX ONE WEEK + TAPERING
     Route: 048
  22. IRFEN [Concomitant]
     Indication: PAIN
     Dosage: MAX DOSES FOR PAIN
     Route: 048
  23. ACETALGIN [Concomitant]
     Indication: PAIN
     Dosage: TOTAL DAILY DOSE: 3000 MG  UNIT DOSE: 500 MG
     Route: 048
  24. CEFUROXIME AXETIL [Concomitant]
     Indication: DRUG USE FOR UNKNOWN INDICATION
     Route: 065
  25. NASIVIN [Concomitant]
     Indication: HAEMOPTYSIS
     Dosage: 0.05%
     Route: 055
  26. OBRAZIN [Concomitant]
     Indication: DRUG USE FOR UNKNOWN INDICATION
     Route: 042
     Dates: start: 20080101
  27. MERONEM [Concomitant]
     Indication: DRUG USE FOR UNKNOWN INDICATION
     Route: 042
     Dates: start: 20080101
  28. TAZOBAC [Concomitant]
     Indication: DRUG USE FOR UNKNOWN INDICATION
     Route: 042
     Dates: start: 20080101
  29. FORTAM [Concomitant]
     Indication: DRUG USE FOR UNKNOWN INDICATION
     Route: 042
     Dates: start: 20080101

REACTIONS (3)
  - DRY MOUTH [None]
  - DYSLALIA [None]
  - ENAMEL ANOMALY [None]
